FAERS Safety Report 7998622-4 (Version None)
Quarter: 2011Q4

REPORT INFORMATION
  Report Type: 
  Country: None (occurrence: None)
  Receive Date: 20111221
  Receipt Date: 20111214
  Transmission Date: 20120403
  Serious: Yes (Hospitalization)
  Sender: FDA-Public Use
  Company Number: PHHY2011FR110612

PATIENT
  Sex: Male

DRUGS (9)
  1. SIMVASTATIN [Concomitant]
     Dosage: 20 MG, UNK
  2. FLUOROURACIL [Suspect]
     Indication: COLORECTAL CANCER
     Route: 042
     Dates: start: 20110623, end: 20110818
  3. AMLODIPINE BESYLATE [Concomitant]
     Dosage: 0.5 DF, UNK
     Route: 048
  4. PLAVIX [Concomitant]
     Dosage: 75 MG, UNK
  5. XANAX [Concomitant]
     Dosage: 0.25 MG, TID
     Dates: start: 20110823
  6. SECTRAL [Concomitant]
     Dosage: 0.5 DF, UNK
     Route: 048
  7. LEUCOVORIN CALCIUM [Concomitant]
  8. CISPLATIN [Concomitant]
  9. ESCITALOPRAM OXALATE [Concomitant]
     Dosage: 10 MG, QD
     Dates: start: 20110829

REACTIONS (13)
  - EXCESSIVE MASTURBATION [None]
  - ANXIETY [None]
  - SOCIAL AVOIDANT BEHAVIOUR [None]
  - VITAMIN D DECREASED [None]
  - APATHY [None]
  - SLEEP DISORDER [None]
  - DISINHIBITION [None]
  - AGGRESSION [None]
  - PSYCHOSEXUAL DISORDER [None]
  - ABNORMAL BEHAVIOUR [None]
  - COGNITIVE DISORDER [None]
  - LIBIDO INCREASED [None]
  - ORTHOSTATIC HYPOTENSION [None]
